FAERS Safety Report 6823465-4 (Version None)
Quarter: 2010Q3

REPORT INFORMATION
  Report Type: 
  Country: None (occurrence: None)
  Receive Date: 20100708
  Receipt Date: 20100628
  Transmission Date: 20110219
  Serious: Yes (Hospitalization)
  Sender: FDA-Public Use
  Company Number: GB-WATSON-2010-08766

PATIENT
  Age: 47 Year
  Sex: Male

DRUGS (1)
  1. PROPAFENONE (WATSON LABORATORIES) [Suspect]
     Indication: OVERDOSE
     Dosage: UNK
     Route: 048

REACTIONS (10)
  - BLOOD PRESSURE DECREASED [None]
  - CARDIAC ARREST [None]
  - COMA [None]
  - CONVULSION [None]
  - ELECTROCARDIOGRAM QRS COMPLEX PROLONGED [None]
  - ELECTROCARDIOGRAM QT PROLONGED [None]
  - HEART RATE DECREASED [None]
  - METABOLIC ACIDOSIS [None]
  - POISONING [None]
  - VENTRICULAR TACHYCARDIA [None]
